FAERS Safety Report 13783593 (Version 1)
Quarter: 2017Q3

REPORT INFORMATION
  Report Type: Spontaneous
  Country: JP (occurrence: JP)
  Receive Date: 20170724
  Receipt Date: 20170724
  Transmission Date: 20171127
  Serious: Yes (Other)
  Sender: FDA-Public Use
  Company Number: JP-PFIZER INC-2017242553

PATIENT
  Age: 84 Year
  Sex: Male
  Weight: 49.3 kg

DRUGS (4)
  1. BICALUTAMIDE. [Suspect]
     Active Substance: BICALUTAMIDE
     Indication: PROSTATE CANCER
     Dosage: 80 MG, 1X/DAY
     Route: 048
     Dates: start: 20170523, end: 20170601
  2. FUNGUARD [Suspect]
     Active Substance: MICAFUNGIN SODIUM
     Indication: ASPERGILLUS INFECTION
     Dosage: 2 VIALS, 1X/DAY
     Route: 041
     Dates: start: 20170512, end: 20170525
  3. FUNGUARD [Suspect]
     Active Substance: MICAFUNGIN SODIUM
     Dosage: 2 VIALS, 1X/DAY
     Route: 041
     Dates: start: 20170530, end: 20170601
  4. VFEND [Suspect]
     Active Substance: VORICONAZOLE
     Dosage: 200 MG, 2X/DAY
     Route: 048
     Dates: start: 20170526, end: 20170530

REACTIONS (2)
  - Bile duct stone [Recovered/Resolved]
  - Hepatic function abnormal [Recovering/Resolving]

NARRATIVE: CASE EVENT DATE: 2017
